FAERS Safety Report 5523981-1 (Version None)
Quarter: 2007Q4

REPORT INFORMATION
  Report Type: 
  Country: None (occurrence: None)
  Receive Date: 20071121
  Receipt Date: 20071112
  Transmission Date: 20080405
  Serious: Yes (Hospitalization)
  Sender: FDA-Public Use
  Company Number: US-SHR-US-2006-012665

PATIENT
  Age: 50 Year
  Sex: Female
  Weight: 93.878 kg

DRUGS (9)
  1. BETASERON [Suspect]
     Dosage: 8 MIU, EVERY 2D
     Route: 058
     Dates: start: 20060730
  2. BETASERON [Suspect]
     Dosage: 8 MIU, EVERY 2D
     Route: 058
     Dates: start: 20060424, end: 20060628
  3. BETASERON [Suspect]
     Dosage: 8 MIU, EVERY 2D
     Route: 058
  4. ATENOLOL [Concomitant]
     Dosage: 25 MG, UNK
     Route: 048
  5. LIPITOR [Concomitant]
  6. CELEXA [Concomitant]
     Dosage: 30 UNK, 1X/DAY
  7. VERAPAMIL [Suspect]
     Indication: VENTRICULAR EXTRASYSTOLES
     Dosage: 180 UNK, UNK
  8. ENABLEX (DARIFENACIN) [Concomitant]
     Dosage: 7.5 MG, 1X/DAY
  9. NEURONTIN [Concomitant]
     Dosage: 300 A.M., 200NIGHT

REACTIONS (8)
  - CONSTIPATION [None]
  - FALL [None]
  - FOREARM FRACTURE [None]
  - INJECTION SITE ERYTHEMA [None]
  - INJECTION SITE PRURITUS [None]
  - INJECTION SITE RASH [None]
  - UPPER LIMB FRACTURE [None]
  - VENTRICULAR EXTRASYSTOLES [None]
